FAERS Safety Report 18509821 (Version 2)
Quarter: 2020Q4

REPORT INFORMATION
  Report Type: Report from Study
  Country: FR (occurrence: FR)
  Receive Date: 20201117
  Receipt Date: 20201202
  Transmission Date: 20210114
  Serious: Yes (Death)
  Sender: FDA-Public Use
  Company Number: FR-BIOVITRUM-2020FR6365

PATIENT
  Age: 84 Year
  Sex: Female

DRUGS (1)
  1. KINERET [Suspect]
     Active Substance: ANAKINRA
     Indication: CORONAVIRUS INFECTION
     Dosage: 100 MG/0.67 ML
     Route: 042

REACTIONS (3)
  - Staphylococcal bacteraemia [Fatal]
  - Septic shock [Fatal]
  - Device related infection [Fatal]

NARRATIVE: CASE EVENT DATE: 20200523
